FAERS Safety Report 10258323 (Version 1)
Quarter: 2014Q2

REPORT INFORMATION
  Report Type: Spontaneous
  Country: US (occurrence: None)
  Receive Date: 20140623
  Receipt Date: 20140623
  Transmission Date: 20141212
  Serious: No
  Sender: FDA-Public Use
  Company Number: None

PATIENT
  Age: 62 Year
  Sex: Female

DRUGS (1)
  1. COPAXONE [Suspect]
     Indication: MULTIPLE SCLEROSIS
     Dosage: 40MG  THREE TIMES WEKLY  SUBCUTANEOUSLY
     Route: 058
     Dates: start: 20140611

REACTIONS (2)
  - Muscle spasms [None]
  - Muscle spasms [None]
